FAERS Safety Report 9714704 (Version 1)
Quarter: 2013Q4

REPORT INFORMATION
  Report Type: Spontaneous
  Country: US (occurrence: US)
  Receive Date: 20131126
  Receipt Date: 20131126
  Transmission Date: 20140711
  Serious: Yes (Hospitalization)
  Sender: FDA-Public Use
  Company Number: US-MALLINCKRODT-T201304932

PATIENT
  Age: 42 Year
  Sex: Male
  Weight: 72.73 kg

DRUGS (1)
  1. FENTANYL CITRATE [Suspect]
     Indication: PRODUCT USED FOR UNKNOWN INDICATION
     Dosage: APPROX. 4
     Route: 048

REACTIONS (9)
  - Suicide attempt [Unknown]
  - Lethargy [Unknown]
  - Irritability [Unknown]
  - Agitation [Unknown]
  - Confusional state [Unknown]
  - Somnolence [Unknown]
  - Hypertension [Unknown]
  - Respiratory depression [Unknown]
  - Tachycardia [Unknown]
